FAERS Safety Report 13270285 (Version 3)
Quarter: 2017Q1

REPORT INFORMATION
  Report Type: Spontaneous
  Country: US (occurrence: US)
  Receive Date: 20170224
  Receipt Date: 20170309
  Transmission Date: 20170428
  Serious: Yes (Other)
  Sender: FDA-Public Use
  Company Number: US-SA-2017SA014658

PATIENT
  Age: 74 Year
  Sex: Male
  Weight: 87.99 kg

DRUGS (2)
  1. LEFLUNOMIDE. [Suspect]
     Active Substance: LEFLUNOMIDE
     Indication: RHEUMATOID ARTHRITIS
     Dosage: 20MG ONCE DAILY IN THE MORNING
     Route: 048
     Dates: start: 20161221, end: 20170201
  2. LEVEMIR [Suspect]
     Active Substance: INSULIN DETEMIR
     Indication: TYPE 2 DIABETES MELLITUS
     Route: 065
     Dates: start: 20170126

REACTIONS (4)
  - Basal cell carcinoma [Unknown]
  - Rash [Not Recovered/Not Resolved]
  - Dermatitis allergic [Unknown]
  - Burning sensation [Not Recovered/Not Resolved]

NARRATIVE: CASE EVENT DATE: 20170105
